FAERS Safety Report 15474088 (Version 2)
Quarter: 2019Q1

REPORT INFORMATION
  Report Type: Report from Study
  Country: US (occurrence: US)
  Receive Date: 20181008
  Receipt Date: 20190108
  Transmission Date: 20190417
  Serious: Yes (Other)
  Sender: FDA-Public Use
  Company Number: US-ARIAD PHARMACEUTICALS, INC-2017US008858

PATIENT
  Sex: Male
  Weight: 84 kg

DRUGS (1)
  1. PONATINIB [Suspect]
     Active Substance: PONATINIB
     Indication: CHRONIC MYELOID LEUKAEMIA RECURRENT
     Dosage: 30 MG, QD
     Route: 048
     Dates: start: 201510

REACTIONS (5)
  - Chronic kidney disease [Unknown]
  - Overweight [Unknown]
  - Fungal infection [Unknown]
  - Type 2 diabetes mellitus [Unknown]
  - Loss of personal independence in daily activities [Unknown]
